FAERS Safety Report 9871858 (Version 2)
Quarter: 2014Q1

REPORT INFORMATION
  Report Type: Spontaneous
  Country: US (occurrence: US)
  Receive Date: 20140205
  Receipt Date: 20140205
  Transmission Date: 20141002
  Serious: Yes (Hospitalization)
  Sender: FDA-Public Use
  Company Number: US-B.I. PHARMACEUTICALS,INC./RIDGEFIELD-2013-BI-34740BP

PATIENT
  Sex: Male
  Weight: 113.4 kg

DRUGS (12)
  1. PRADAXA [Suspect]
     Indication: ATRIAL FIBRILLATION
     Dosage: 300 MG
     Route: 048
     Dates: start: 20110630, end: 20110714
  2. NAPROXEN [Suspect]
     Indication: RHEUMATOID ARTHRITIS
     Dosage: 750 MG
     Route: 048
     Dates: start: 20110710, end: 20110714
  3. LOVENOX [Suspect]
     Indication: ANTICOAGULANT THERAPY
     Dosage: 40 MG
     Route: 058
     Dates: end: 20110713
  4. ASPIRIN [Concomitant]
     Dosage: 81 MG
     Route: 048
  5. DIGOXIN [Concomitant]
     Dosage: 0.25 MG
     Route: 048
  6. METOPROLOL [Concomitant]
     Dosage: 400 MG
     Route: 048
  7. LIPITOR [Concomitant]
     Dosage: 10 MG
     Route: 048
  8. EFFEXOR [Concomitant]
     Dosage: 75 MG
     Route: 048
  9. TRAZAODONE [Concomitant]
     Dosage: 35 MG
     Route: 048
  10. CLARITIN [Concomitant]
     Dosage: 10 MG
     Route: 048
  11. COLACE [Concomitant]
     Dosage: 200 MG
     Route: 048
  12. TYLENOL [Concomitant]
     Route: 048

REACTIONS (3)
  - Upper gastrointestinal haemorrhage [Unknown]
  - Anaemia [Unknown]
  - Coagulopathy [Unknown]
